FAERS Safety Report 20545675 (Version 1)
Quarter: 2022Q1

REPORT INFORMATION
  Report Type: Spontaneous
  Country: US (occurrence: US)
  Receive Date: 20220303
  Receipt Date: 20220303
  Transmission Date: 20220424
  Serious: Yes (Hospitalization)
  Sender: FDA-Public Use
  Company Number: US-GW PHARMA-202202USGW01024

PATIENT
  Sex: Male

DRUGS (1)
  1. EPIDIOLEX [Suspect]
     Active Substance: CANNABIDIOL
     Indication: Severe myoclonic epilepsy of infancy
     Dosage: 65 MILLIGRAM, BID AND DOSE WAS INCREASED TO 100 MG, BID (NOT YET SHIPPED)
     Route: 048
     Dates: start: 202106

REACTIONS (1)
  - Seizure [Unknown]
